FAERS Safety Report 12404060 (Version 2)
Quarter: 2016Q3

REPORT INFORMATION
  Report Type: Spontaneous
  Country: CA (occurrence: CA)
  Receive Date: 20160525
  Receipt Date: 20160822
  Transmission Date: 20161109
  Serious: Yes (Hospitalization, Other)
  Sender: FDA-Public Use
  Company Number: CA-GLAXOSMITHKLINE-CA2016GSK004315

PATIENT
  Age: 45 Year
  Sex: Male

DRUGS (2)
  1. BENLYSTA [Suspect]
     Active Substance: BELIMUMAB
     Indication: SYSTEMIC LUPUS ERYTHEMATOSUS
     Dosage: 680 MG, EVERY 4 WEEKS
     Route: 042
     Dates: start: 20151214
  2. BENLYSTA [Suspect]
     Active Substance: BELIMUMAB
     Dosage: 630 MG, UNK
     Route: 042
     Dates: end: 20160307

REACTIONS (9)
  - Malaise [Unknown]
  - Adverse event [Not Recovered/Not Resolved]
  - Stress [Unknown]
  - Insomnia [Unknown]
  - Drug ineffective [Unknown]
  - Angioedema [Unknown]
  - Nausea [Unknown]
  - Pain in extremity [Unknown]
  - Pain [Unknown]

NARRATIVE: CASE EVENT DATE: 201603
